FAERS Safety Report 9435064 (Version 1)
Quarter: 2013Q3

REPORT INFORMATION
  Report Type: Spontaneous
  Country: GB (occurrence: GB)
  Receive Date: 20130801
  Receipt Date: 20130801
  Transmission Date: 20140515
  Serious: Yes (Other)
  Sender: FDA-Public Use
  Company Number: GB-AMGEN-GBRSP2013052807

PATIENT
  Age: 73 Year
  Sex: Female
  Weight: 61 kg

DRUGS (2)
  1. PROLIA [Suspect]
     Indication: OSTEOPOROSIS POSTMENOPAUSAL
     Dosage: 60 MG, UNK
     Route: 051
     Dates: start: 20130520
  2. ADCAL D3 [Concomitant]

REACTIONS (2)
  - Myalgia [Not Recovered/Not Resolved]
  - Muscle tightness [Not Recovered/Not Resolved]
